FAERS Safety Report 8003687-X (Version None)
Quarter: 2011Q4

REPORT INFORMATION
  Report Type: 
  Country: None (occurrence: None)
  Receive Date: 20111222
  Receipt Date: 20111216
  Transmission Date: 20120403
  Serious: Yes (Hospitalization, Other)
  Sender: FDA-Public Use
  Company Number: US-ABBOTT-11P-163-0884481-00

PATIENT
  Age: 22 Year
  Sex: Male

DRUGS (2)
  1. HUMIRA [Suspect]
     Indication: CROHN'S DISEASE
     Dosage: 80MG LOADING DOSE
     Dates: start: 20111115
  2. HUMIRA [Suspect]

REACTIONS (2)
  - ABDOMINAL PAIN [None]
  - INTESTINAL OBSTRUCTION [None]
